FAERS Safety Report 9179518 (Version 3)
Quarter: 2013Q3

REPORT INFORMATION
  Report Type: Report from Study
  Country: CL (occurrence: CL)
  Receive Date: 20130321
  Receipt Date: 20130905
  Transmission Date: 20140515
  Serious: Yes (Hospitalization)
  Sender: FDA-Public Use
  Company Number: CL-ABBOTT-13P-034-1063631-00

PATIENT
  Age: 79 Year
  Sex: Female
  Weight: 70 kg

DRUGS (12)
  1. HUMIRA [Suspect]
     Indication: RHEUMATOID ARTHRITIS
     Route: 058
     Dates: start: 20080301
  2. HUMIRA [Suspect]
     Route: 058
     Dates: start: 20120829, end: 201302
  3. HUMIRA [Suspect]
     Dates: start: 201306
  4. LANSOPRAZOLE [Concomitant]
     Indication: PROPHYLAXIS
     Route: 048
  5. LANSOPRAZOLE [Concomitant]
     Indication: GASTRIC DISORDER
  6. VALSARTAN + HIDROCLOROTIAZIDA [Concomitant]
     Indication: PRODUCT USED FOR UNKNOWN INDICATION
     Dosage: 80MG/12.5MG DAILY
     Route: 048
  7. ESCITALOPRAM [Concomitant]
     Indication: DEPRESSION
     Route: 048
  8. DEFLAZACORT [Concomitant]
     Indication: RHEUMATOID ARTHRITIS
     Route: 048
  9. FOLIC ACID [Concomitant]
     Indication: VITAMIN SUPPLEMENTATION
     Route: 048
  10. TRAZODONE HYDROCHLORIDE [Concomitant]
     Indication: DEPRESSION
     Dosage: AT NIGHT
     Route: 048
  11. CLONAZEPAM [Concomitant]
     Indication: DEPRESSION
     Dosage: AT NIGHT
     Route: 048
  12. TROSPIUM CHLORIDE [Concomitant]
     Indication: PRODUCT USED FOR UNKNOWN INDICATION
     Route: 048

REACTIONS (5)
  - Respiratory failure [Recovered/Resolved]
  - Bronchitis [Recovered/Resolved]
  - Bronchitis [Recovered/Resolved]
  - Respiratory disorder [Recovered/Resolved]
  - Nasopharyngitis [Unknown]
